FAERS Safety Report 6031302-3 (Version None)
Quarter: 2008Q4

REPORT INFORMATION
  Report Type: 
  Country: None (occurrence: None)
  Receive Date: 20081224
  Receipt Date: 20080730
  Transmission Date: 20090506
  Serious: No
  Sender: FDA-Public Use
  Company Number: US-CVT-080072

PATIENT
  Age: 60 Year
  Sex: Male
  Weight: 93.9 kg

DRUGS (11)
  1. RANEXA [Suspect]
     Indication: ANGINA PECTORIS
     Dosage: 500 MG, BID, ORAL
     Route: 048
     Dates: start: 20080625, end: 20080731
  2. RANEXA [Suspect]
     Indication: CHEST PAIN
     Dosage: 500 MG, BID, ORAL
     Route: 048
     Dates: start: 20080625, end: 20080731
  3. IMDUR [Suspect]
     Indication: CHEST PAIN
     Dosage: 60 MG, QD
     Dates: start: 20080724
  4. COREG [Concomitant]
  5. TRILEPTAL [Concomitant]
  6. NEXIUM [Concomitant]
  7. PLAVIX [Concomitant]
  8. VYTORIN [Concomitant]
  9. LUNESTA [Concomitant]
  10. ANDROGEL [Concomitant]
  11. XANAX [Concomitant]

REACTIONS (4)
  - DYSPNOEA [None]
  - MIGRAINE [None]
  - NERVOUSNESS [None]
  - TREMOR [None]
